FAERS Safety Report 10207892 (Version 1)
Quarter: 2014Q2

REPORT INFORMATION
  Report Type: Spontaneous
  Country: US (occurrence: US)
  Receive Date: 20140530
  Receipt Date: 20140530
  Transmission Date: 20141212
  Serious: No
  Sender: FDA-Public Use
  Company Number: US-GLAXOSMITHKLINE-A1063912A

PATIENT
  Age: 49 Year
  Sex: Female

DRUGS (5)
  1. VENTOLIN [Suspect]
     Indication: WHEEZING
     Dosage: 2PUFF AS REQUIRED
     Route: 055
     Dates: start: 20140225
  2. CELEXA [Concomitant]
     Dosage: 20MG PER DAY
  3. VITAMINS [Concomitant]
  4. XANAX [Concomitant]
     Dosage: 1MG AS REQUIRED
  5. AMBIEN [Concomitant]

REACTIONS (3)
  - Frustration [Not Recovered/Not Resolved]
  - Adverse event [Unknown]
  - Product quality issue [Unknown]
